FAERS Safety Report 8089057-7 (Version None)
Quarter: 2012Q1

REPORT INFORMATION
  Report Type: 
  Country: None (occurrence: None)
  Receive Date: 20120128
  Receipt Date: 20110721
  Transmission Date: 20120608
  Serious: No
  Sender: FDA-Public Use
  Company Number: US-ABBOTT-11P-163-0714070-00

PATIENT
  Sex: Female
  Weight: 72.64 kg

DRUGS (7)
  1. HUMIRA [Suspect]
     Indication: HIDRADENITIS
     Dates: start: 20110201, end: 20110301
  2. LEXAPRO [Concomitant]
     Indication: DEPRESSION
     Route: 048
  3. BEYAZ BC [Concomitant]
     Indication: CONTRACEPTION
     Route: 048
  4. MONODOX [Concomitant]
     Indication: PROPHYLAXIS
  5. VITAMIN D [Concomitant]
     Indication: VITAMIN SUPPLEMENTATION
  6. VANOS [Concomitant]
     Indication: PRODUCT USED FOR UNKNOWN INDICATION
  7. PREDNISONE TAB [Concomitant]
     Indication: PRODUCT USED FOR UNKNOWN INDICATION
     Dates: end: 20110201

REACTIONS (10)
  - INJECTION SITE SWELLING [None]
  - OFF LABEL USE [None]
  - DRUG HYPERSENSITIVITY [None]
  - INJECTION SITE PRURITUS [None]
  - INJECTION SITE NODULE [None]
  - INJECTION SITE MASS [None]
  - INJECTION SITE REACTION [None]
  - HIDRADENITIS [None]
  - INJECTION SITE ERYTHEMA [None]
  - INJECTION SITE URTICARIA [None]
